FAERS Safety Report 18561236 (Version 5)
Quarter: 2021Q2

REPORT INFORMATION
  Report Type: Report from Study
  Country: US (occurrence: US)
  Receive Date: 20201130
  Receipt Date: 20210619
  Transmission Date: 20210717
  Serious: No
  Sender: FDA-Public Use
  Company Number: NVSC2020US316795

PATIENT
  Sex: Female

DRUGS (3)
  1. ENTRESTO [Suspect]
     Active Substance: SACUBITRIL\VALSARTAN
     Indication: CARDIAC FAILURE CHRONIC
     Dosage: UNK
     Route: 065
  2. FUROSEMIDE. [Concomitant]
     Active Substance: FUROSEMIDE
     Indication: PRODUCT USED FOR UNKNOWN INDICATION
     Dosage: UNK
     Route: 065
  3. FUROSEMIDE. [Concomitant]
     Active Substance: FUROSEMIDE
     Dosage: UNK, DOUBLED
     Route: 065

REACTIONS (9)
  - Fall [Unknown]
  - Pain in extremity [Unknown]
  - Dyspnoea [Unknown]
  - Weight decreased [Unknown]
  - Weight increased [Unknown]
  - Muscle spasms [Unknown]
  - Eye contusion [Unknown]
  - Confusional state [Unknown]
  - Incorrect dose administered [Unknown]
